FAERS Safety Report 19898860 (Version 1)
Quarter: 2021Q3

REPORT INFORMATION
  Report Type: Spontaneous
  Country: US (occurrence: US)
  Receive Date: 20210929
  Receipt Date: 20210929
  Transmission Date: 20211014
  Serious: No
  Sender: FDA-Public Use
  Company Number: None

PATIENT
  Age: 70 Year
  Sex: Male
  Weight: 97 kg

DRUGS (1)
  1. METFORMIN (METFORMIN HCL 500MG TAB) [Suspect]
     Active Substance: METFORMIN HYDROCHLORIDE
     Indication: DIABETES MELLITUS
     Dates: start: 20180207, end: 20210610

REACTIONS (10)
  - Blood lactic acid increased [None]
  - Blood creatinine increased [None]
  - Dehydration [None]
  - Blood potassium decreased [None]
  - Dialysis [None]
  - Cardio-respiratory arrest [None]
  - Asthenia [None]
  - Hypotension [None]
  - Shock [None]
  - Fatigue [None]

NARRATIVE: CASE EVENT DATE: 20210623
